FAERS Safety Report 8805465 (Version 2)
Quarter: 2012Q4

REPORT INFORMATION
  Report Type: 
  Country: US (occurrence: US)
  Receive Date: 20120924
  Receipt Date: 20121227
  Transmission Date: 20130627
  Serious: Yes (Death, Other)
  Sender: FDA-Public Use
  Company Number: US-ROCHE-1122730

PATIENT
  Sex: Female

DRUGS (62)
  1. AVASTIN [Suspect]
     Indication: COLON CANCER
     Route: 065
  2. AVASTIN [Suspect]
     Indication: COLON CANCER
  3. INFED [Concomitant]
     Route: 065
     Dates: start: 20100908
  4. FOLINIC ACID [Concomitant]
     Route: 065
     Dates: start: 20100921
  5. FOLINIC ACID [Concomitant]
     Route: 065
     Dates: start: 20101005
  6. FOLINIC ACID [Concomitant]
     Route: 065
     Dates: start: 20101101
  7. FOLINIC ACID [Concomitant]
     Route: 065
     Dates: start: 20101115
  8. FOLINIC ACID [Concomitant]
     Route: 065
     Dates: start: 20110107
  9. FOLINIC ACID [Concomitant]
     Route: 065
     Dates: start: 20110126
  10. FOLINIC ACID [Concomitant]
     Route: 065
     Dates: start: 20110208
  11. FOLINIC ACID [Concomitant]
     Route: 065
     Dates: start: 20110302
  12. FOLINIC ACID [Concomitant]
     Route: 065
     Dates: start: 20110329
  13. FOLINIC ACID [Concomitant]
     Route: 065
     Dates: start: 20110412
  14. FOLINIC ACID [Concomitant]
     Route: 065
     Dates: start: 20110426
  15. FOLINIC ACID [Concomitant]
     Route: 065
     Dates: start: 20110509
  16. FOLINIC ACID [Concomitant]
     Route: 065
     Dates: start: 20110525
  17. 5-FU [Concomitant]
     Route: 065
     Dates: start: 20100921
  18. 5-FU [Concomitant]
     Route: 065
     Dates: start: 20101005
  19. 5-FU [Concomitant]
     Route: 065
     Dates: start: 20101101
  20. 5-FU [Concomitant]
     Route: 065
     Dates: start: 20101115
  21. 5-FU [Concomitant]
     Route: 065
     Dates: start: 20110107
  22. 5-FU [Concomitant]
     Route: 065
     Dates: start: 20110126
  23. 5-FU [Concomitant]
     Route: 065
     Dates: start: 20110208
  24. 5-FU [Concomitant]
     Route: 065
     Dates: start: 20110302
  25. 5-FU [Concomitant]
     Route: 065
     Dates: start: 20110329
  26. 5-FU [Concomitant]
     Route: 065
     Dates: start: 20110412
  27. 5-FU [Concomitant]
     Route: 065
     Dates: start: 20110426
  28. 5-FU [Concomitant]
     Route: 065
     Dates: start: 20110509
  29. 5-FU [Concomitant]
     Route: 065
     Dates: start: 20110525
  30. IRINOTECAN [Concomitant]
     Route: 065
     Dates: start: 20100921
  31. IRINOTECAN [Concomitant]
     Route: 065
     Dates: start: 20101005
  32. IRINOTECAN [Concomitant]
     Route: 065
     Dates: start: 20101101
  33. IRINOTECAN [Concomitant]
     Route: 065
     Dates: start: 20101115
  34. IRINOTECAN [Concomitant]
     Route: 065
     Dates: start: 20110107
  35. IRINOTECAN [Concomitant]
     Route: 065
     Dates: start: 20110126
  36. IRINOTECAN [Concomitant]
     Route: 065
     Dates: start: 20110208
  37. IRINOTECAN [Concomitant]
     Route: 065
     Dates: start: 20110302
  38. IRINOTECAN [Concomitant]
     Route: 065
     Dates: start: 20110329
  39. IRINOTECAN [Concomitant]
     Route: 065
     Dates: start: 20110706
  40. IRINOTECAN [Concomitant]
     Route: 065
     Dates: start: 20110722
  41. IRINOTECAN [Concomitant]
     Route: 065
     Dates: start: 20110729
  42. IRINOTECAN [Concomitant]
     Route: 065
     Dates: start: 20110905
  43. IRINOTECAN [Concomitant]
     Route: 065
     Dates: start: 20110930
  44. IRINOTECAN [Concomitant]
     Route: 065
     Dates: start: 20111020
  45. IRINOTECAN [Concomitant]
     Route: 065
     Dates: start: 20111108
  46. IRINOTECAN [Concomitant]
     Route: 065
     Dates: start: 20111201
  47. OXALIPLATIN [Concomitant]
     Route: 065
     Dates: start: 20110412
  48. OXALIPLATIN [Concomitant]
     Route: 065
     Dates: start: 20110426
  49. OXALIPLATIN [Concomitant]
     Route: 065
     Dates: start: 20110509
  50. OXALIPLATIN [Concomitant]
     Route: 065
     Dates: start: 20110525
  51. CAMPTOTHECIN [Concomitant]
     Route: 065
     Dates: start: 20110706
  52. CAMPTOTHECIN [Concomitant]
     Route: 065
     Dates: start: 20110722
  53. ERBITUX [Concomitant]
     Route: 065
     Dates: start: 20110706
  54. ERBITUX [Concomitant]
     Route: 065
     Dates: start: 20110722
  55. ERBITUX [Concomitant]
     Route: 065
     Dates: start: 20110729
  56. ERBITUX [Concomitant]
     Route: 065
     Dates: start: 20110915
  57. ERBITUX [Concomitant]
     Route: 065
     Dates: start: 20110930
  58. ERBITUX [Concomitant]
     Route: 065
     Dates: start: 20111020
  59. ERBITUX [Concomitant]
     Route: 065
     Dates: start: 20111108
  60. ERBITUX [Concomitant]
     Route: 065
     Dates: start: 20111201
  61. LORTAB [Concomitant]
     Dosage: 5/500
     Route: 065
  62. MULTIVITAMIN [Concomitant]

REACTIONS (10)
  - Colon cancer [Fatal]
  - Fistula [Unknown]
  - Nausea [Unknown]
  - Vomiting [Unknown]
  - Back pain [Unknown]
  - Dry skin [Unknown]
  - Erythema [Unknown]
  - Rash [Unknown]
  - Fall [Unknown]
  - Arthralgia [Unknown]
